FAERS Safety Report 20760784 (Version 2)
Quarter: 2022Q2

REPORT INFORMATION
  Report Type: Spontaneous
  Country: US (occurrence: US)
  Receive Date: 20220428
  Receipt Date: 20220523
  Transmission Date: 20220720
  Serious: No
  Sender: FDA-Public Use
  Company Number: US-PURACAP-US-2022EPCSPO00237

PATIENT
  Age: 79 Year
  Sex: Male

DRUGS (2)
  1. DUTASTERIDE [Suspect]
     Active Substance: DUTASTERIDE
     Indication: Prostatomegaly
     Dosage: ON UNKNOWN DATE SINCE 02 YEARS
     Route: 048
  2. HERBALS\SAW PALMETTO [Concomitant]
     Active Substance: HERBALS\SAW PALMETTO
     Indication: Product used for unknown indication
     Dosage: PILLS
     Route: 065

REACTIONS (1)
  - Blood testosterone increased [Not Recovered/Not Resolved]
